FAERS Safety Report 7803004-1 (Version None)
Quarter: 2011Q4

REPORT INFORMATION
  Report Type: 
  Country: None (occurrence: None)
  Receive Date: 20111007
  Receipt Date: 20110928
  Transmission Date: 20120403
  Serious: Yes (Hospitalization)
  Sender: FDA-Public Use
  Company Number: CN-BRISTOL-MYERS SQUIBB COMPANY-16107740

PATIENT
  Age: 68 Year
  Sex: Female

DRUGS (3)
  1. IRBESARTAN [Suspect]
     Indication: HYPERTENSION
     Dosage: 2007-AUG11 AUG11-27SEP11 AGAIN 0A013/2013.07 RESTARTED ON 28SEP11
     Route: 048
     Dates: start: 20070101
  2. METOPROLOL TARTRATE [Suspect]
     Indication: HYPERTENSION
     Dosage: 1DF=0.5TABLET
     Route: 048
     Dates: start: 20070101
  3. METFORMIN HYDROCHLORIDE [Concomitant]
     Indication: DIABETES MELLITUS
     Route: 048
     Dates: start: 20060101

REACTIONS (3)
  - DIZZINESS [None]
  - PRODUCT COUNTERFEIT [None]
  - BLOOD PRESSURE INADEQUATELY CONTROLLED [None]
